FAERS Safety Report 9327354 (Version 1)
Quarter: 2013Q2

REPORT INFORMATION
  Report Type: Spontaneous
  Country: US (occurrence: US)
  Receive Date: 20130604
  Receipt Date: 20130604
  Transmission Date: 20140414
  Serious: No
  Sender: FDA-Public Use
  Company Number: US-AMGEN-USASP2013035242

PATIENT
  Age: 56 Year
  Sex: Female

DRUGS (2)
  1. ENBREL [Suspect]
     Indication: PSORIATIC ARTHROPATHY
     Dosage: 50 MG, QWK
     Dates: start: 20110608
  2. METHOTREXATE [Concomitant]
     Dosage: 2.5MG 10 TABLETS WEEKLY
     Dates: start: 2010

REACTIONS (2)
  - Rash [Recovered/Resolved]
  - Pain of skin [Recovered/Resolved]
